FAERS Safety Report 8351027-9 (Version None)
Quarter: 2012Q2

REPORT INFORMATION
  Report Type: 
  Country: None (occurrence: None)
  Receive Date: 20120510
  Receipt Date: 20120509
  Transmission Date: 20120825
  Serious: Yes (Other)
  Sender: FDA-Public Use
  Company Number: US-PFIZER INC-2012113827

PATIENT
  Sex: Female

DRUGS (1)
  1. CHANTIX [Suspect]
     Dosage: UNK

REACTIONS (7)
  - HYPOAESTHESIA [None]
  - GENERAL PHYSICAL HEALTH DETERIORATION [None]
  - LIMB DISCOMFORT [None]
  - WALKING AID USER [None]
  - ABNORMAL BEHAVIOUR [None]
  - HALLUCINATION [None]
  - ACTIVITIES OF DAILY LIVING IMPAIRED [None]
